FAERS Safety Report 20259115 (Version 2)
Quarter: 2022Q4

REPORT INFORMATION
  Report Type: Spontaneous
  Country: US (occurrence: US)
  Receive Date: 20211230
  Receipt Date: 20221115
  Transmission Date: 20230112
  Serious: Yes (Other)
  Sender: FDA-Public Use
  Company Number: US-PFIZER INC-202101849987

PATIENT
  Age: 63 Year
  Sex: Female

DRUGS (3)
  1. RAPAMUNE [Suspect]
     Active Substance: SIROLIMUS
     Indication: Heart transplant
     Dosage: 1 MG
  2. RAPAMUNE [Suspect]
     Active Substance: SIROLIMUS
     Dosage: 2.5 MG, ALTERNATE DAY (TAKE TWO 1MG TABLETS ALONG WITH ONE 0.5MG TABLET FOT TOTAL DOSE OF 2.5MG EVER
  3. RAPAMUNE [Suspect]
     Active Substance: SIROLIMUS
     Dosage: 2 MG, ALTERNATE DAY (TAKE TWO 1MG TABLETS ALONG WITH ONE 0.5MG TABLET FOT TOTAL DOSE OF 2.5MG EVERY

REACTIONS (2)
  - Cardiac disorder [Unknown]
  - Off label use [Unknown]
